FAERS Safety Report 16620214 (Version 1)
Quarter: 2019Q3

REPORT INFORMATION
  Report Type: Spontaneous
  Country: US (occurrence: US)
  Receive Date: 20190723
  Receipt Date: 20190723
  Transmission Date: 20191004
  Serious: No
  Sender: FDA-Public Use
  Company Number: US-IGSA-SR10008238

PATIENT
  Age: 37 Year
  Sex: Female

DRUGS (1)
  1. GAMUNEX-C [Suspect]
     Active Substance: HUMAN IMMUNOGLOBULIN G
     Indication: PRIMARY IMMUNODEFICIENCY SYNDROME
     Dosage: UNK
     Route: 042
     Dates: start: 200808, end: 201810

REACTIONS (4)
  - Fatigue [Unknown]
  - Upper respiratory tract infection [Unknown]
  - Infusion site pain [Unknown]
  - Headache [Unknown]

NARRATIVE: CASE EVENT DATE: 200808
